FAERS Safety Report 7312980-5 (Version None)
Quarter: 2011Q1

REPORT INFORMATION
  Report Type: 
  Country: None (occurrence: None)
  Receive Date: 20110224
  Receipt Date: 20110210
  Transmission Date: 20110831
  Serious: Yes (Hospitalization)
  Sender: FDA-Public Use
  Company Number: US-MYLANLABS-2011S1002983

PATIENT
  Age: 69 Year
  Sex: Female

DRUGS (4)
  1. HYDRALAZINE [Concomitant]
     Route: 065
  2. FERROUS SULFATE TAB [Concomitant]
     Route: 065
  3. VERAPAMIL [Suspect]
     Route: 065
  4. ESOMEPRAZOLE [Concomitant]
     Route: 065

REACTIONS (2)
  - TOXICITY TO VARIOUS AGENTS [None]
  - ATRIOVENTRICULAR BLOCK COMPLETE [None]
